FAERS Safety Report 8158836-X (Version None)
Quarter: 2012Q1

REPORT INFORMATION
  Report Type: 
  Country: None (occurrence: None)
  Receive Date: 20120223
  Receipt Date: 20120217
  Transmission Date: 20120608
  Serious: Yes (Death)
  Sender: FDA-Public Use
  Company Number: JP-ASTELLAS-2012JP001432

PATIENT
  Sex: Male
  Weight: 58.3 kg

DRUGS (9)
  1. DUTASTERIDE [Concomitant]
     Indication: BENIGN PROSTATIC HYPERPLASIA
     Dosage: 0.5 MG, UNKNOWN/D
     Route: 048
     Dates: start: 20111003, end: 20111130
  2. ALFAROL [Concomitant]
     Indication: OSTEOPOROSIS
     Dosage: 1 UG, UNKNOWN/D
     Route: 048
     Dates: start: 20111003, end: 20111130
  3. PENTASA [Concomitant]
     Indication: COLITIS ULCERATIVE
     Dosage: 1000 MG, UNKNOWN/D
     Route: 048
     Dates: start: 20111016, end: 20111130
  4. TAMSULOSIN HCL [Concomitant]
     Indication: BENIGN PROSTATIC HYPERPLASIA
     Dosage: 0.2 MG, UNKNOWN/D
     Route: 048
     Dates: start: 20111016, end: 20111130
  5. PREDNISOLONE [Concomitant]
     Indication: COLITIS ULCERATIVE
     Dosage: 20 MG, UNKNOWN/D
     Route: 048
     Dates: start: 20111024, end: 20111130
  6. IMURAN [Concomitant]
     Indication: COLITIS ULCERATIVE
     Dosage: 50 MG, UNKNOWN/D
     Route: 048
     Dates: start: 20111003, end: 20111130
  7. FAMOTIDINE [Concomitant]
     Indication: GASTRIC ULCER
     Dosage: 20 MG, UNKNOWN/D
     Route: 048
     Dates: start: 20111003, end: 20111130
  8. PROGRAF [Suspect]
     Indication: COLITIS ULCERATIVE
     Route: 048
  9. VOLTAREN [Concomitant]
     Indication: BACK PAIN
     Dosage: 25 MG, UNKNOWN/D
     Route: 054
     Dates: start: 20111016, end: 20111130

REACTIONS (1)
  - PNEUMONIA [None]
